FAERS Safety Report 6337320-X (Version None)
Quarter: 2009Q4

REPORT INFORMATION
  Report Type: 
  Country: None (occurrence: None)
  Receive Date: 20090828
  Receipt Date: 20090828
  Transmission Date: 20100525
  Serious: Yes (Other)
  Sender: FDA-Public Use
  Company Number: None

PATIENT
  Age: 56 Year
  Sex: Female
  Weight: 72.5755 kg

DRUGS (2)
  1. OPTIVE 15ML ALLERGEN, INC. [Suspect]
     Indication: DRY EYE
     Dosage: 1-2 DROPS PRN OPTHALMIC
     Route: 047
     Dates: start: 20090520, end: 20090527
  2. REFRESH CELLUVISC 0.4 ML ALLERGAN, INC [Suspect]
     Indication: DRY EYE
     Dosage: 1-2 DROPS PRN OPTHALMIC
     Route: 047
     Dates: start: 20090605, end: 20090608

REACTIONS (7)
  - DRY EYE [None]
  - EYE IRRITATION [None]
  - EYE SWELLING [None]
  - OCULAR DISCOMFORT [None]
  - PURULENT DISCHARGE [None]
  - SKIN LESION [None]
  - VISUAL IMPAIRMENT [None]
